FAERS Safety Report 8630177 (Version 3)
Quarter: 2015Q3

REPORT INFORMATION
  Report Type: Spontaneous
  Country: US (occurrence: US)
  Receive Date: 20120622
  Receipt Date: 20150709
  Transmission Date: 20151125
  Serious: No
  Sender: FDA-Public Use
  Company Number: US-MILLENNIUM PHARMACEUTICALS, INC.-2012-04179

PATIENT
  Sex: Female

DRUGS (1)
  1. VELCADE [Suspect]
     Active Substance: BORTEZOMIB
     Indication: PLASMA CELL MYELOMA
     Dosage: 3.5 MG, CYCLIC
     Route: 042
     Dates: start: 20120529

REACTIONS (10)
  - Anxiety [Unknown]
  - Activities of daily living impaired [Unknown]
  - Bone pain [Unknown]
  - Asthenia [Unknown]
  - Depression [Unknown]
  - Back pain [Unknown]
  - Pain in extremity [Unknown]
  - Coordination abnormal [Unknown]
  - Dyspnoea [Unknown]
  - Fatigue [Unknown]
